FAERS Safety Report 4725254-3 (Version None)
Quarter: 2005Q3

REPORT INFORMATION
  Report Type: 
  Country: None (occurrence: None)
  Receive Date: 20050725
  Receipt Date: 20050713
  Transmission Date: 20060218
  Serious: Yes (Other)
  Sender: FDA-Public Use
  Company Number: 2005102024

PATIENT
  Sex: Female
  Weight: 95.2554 kg

DRUGS (2)
  1. DETROL LA [Suspect]
     Indication: URINARY INCONTINENCE
     Dosage: 4 MG (4 MG, 1 IN 1 D), ORAL
     Route: 048
     Dates: start: 20000101
  2. IBUPROFEN [Concomitant]

REACTIONS (6)
  - COUGH [None]
  - DISEASE RECURRENCE [None]
  - DRY MOUTH [None]
  - DRY SKIN [None]
  - ECONOMIC PROBLEM [None]
  - URINARY INCONTINENCE [None]
